FAERS Safety Report 7458522-5 (Version None)
Quarter: 2011Q2

REPORT INFORMATION
  Report Type: 
  Country: None (occurrence: None)
  Receive Date: 20110504
  Receipt Date: 20110428
  Transmission Date: 20111010
  Serious: Yes (Hospitalization, Other)
  Sender: FDA-Public Use
  Company Number: PHHY2010GB89848

PATIENT
  Sex: Female

DRUGS (4)
  1. CO-DYDRAMOL [Suspect]
  2. DIAZEPAM [Suspect]
     Dosage: 300 MG, UNK
  3. FERROUS FUMARATE [Suspect]
  4. QUETIAPINE [Suspect]
     Dosage: 4.3 G, UNK

REACTIONS (3)
  - COMA [None]
  - ELECTROCARDIOGRAM QT PROLONGED [None]
  - MULTIPLE DRUG OVERDOSE [None]
